FAERS Safety Report 18465201 (Version 2)
Quarter: 2021Q3

REPORT INFORMATION
  Report Type: Report from Study
  Country: FR (occurrence: FR)
  Receive Date: 20201104
  Receipt Date: 20210729
  Transmission Date: 20211014
  Serious: No
  Sender: FDA-Public Use
  Company Number: FR-SHIRE-FR201945968

PATIENT
  Age: 33 Year
  Sex: Male

DRUGS (13)
  1. TEDUGLUTIDE [Suspect]
     Active Substance: TEDUGLUTIDE
     Indication: SHORT-BOWEL SYNDROME
     Dosage: UNK
     Route: 065
     Dates: start: 20160215, end: 201703
  2. TEDUGLUTIDE [Suspect]
     Active Substance: TEDUGLUTIDE
     Dosage: 0.050 MILLIGRAM/KILOGRAM, QD
     Route: 065
     Dates: start: 201703
  3. VENOFER [Concomitant]
     Active Substance: IRON SUCROSE
     Indication: PROPHYLAXIS
     Dosage: 300 MILLIGRAM, SINGLE
     Route: 042
     Dates: start: 20160923, end: 20160923
  4. TAUROLOCK [Concomitant]
     Active Substance: TAUROLIDINE
     Dosage: 1 AMP
     Route: 042
  5. TEDUGLUTIDE [Suspect]
     Active Substance: TEDUGLUTIDE
     Indication: SHORT-BOWEL SYNDROME
     Dosage: UNK
     Route: 065
     Dates: start: 20160215, end: 201703
  6. TEDUGLUTIDE [Suspect]
     Active Substance: TEDUGLUTIDE
     Dosage: 0.050 MILLIGRAM/KILOGRAM, QD
     Route: 065
     Dates: start: 201703
  7. TEDUGLUTIDE [Suspect]
     Active Substance: TEDUGLUTIDE
     Dosage: 0.050 MILLIGRAM/KILOGRAM, QD
     Route: 065
     Dates: start: 201703
  8. TAUROLOCK [Concomitant]
     Active Substance: TAUROLIDINE
     Indication: PROPHYLAXIS
     Dosage: 1 AMP
     Route: 042
  9. NATECAL D3 [Concomitant]
     Active Substance: CALCIUM CARBONATE\CHOLECALCIFEROL
     Indication: PROPHYLAXIS
     Dosage: 600 MILLIGRAM, BID
     Route: 048
     Dates: start: 20160425
  10. UVEDOSE [Concomitant]
     Active Substance: CHOLECALCIFEROL
     Indication: PROPHYLAXIS
     Dosage: 100000 INTERNATIONAL UNIT, 2/MONTH
     Route: 048
  11. TEDUGLUTIDE [Suspect]
     Active Substance: TEDUGLUTIDE
     Dosage: 0.050 MILLIGRAM/KILOGRAM, QD
     Route: 065
     Dates: start: 201703
  12. TEDUGLUTIDE [Suspect]
     Active Substance: TEDUGLUTIDE
     Indication: SHORT-BOWEL SYNDROME
     Dosage: UNK
     Route: 065
     Dates: start: 20160215, end: 201703
  13. TEDUGLUTIDE [Suspect]
     Active Substance: TEDUGLUTIDE
     Indication: SHORT-BOWEL SYNDROME
     Dosage: UNK
     Route: 065
     Dates: start: 20160215, end: 201703

REACTIONS (1)
  - Large intestine polyp [Recovered/Resolved]

NARRATIVE: CASE EVENT DATE: 20190205
